FAERS Safety Report 10258312 (Version 1)
Quarter: 2014Q2

REPORT INFORMATION
  Report Type: Spontaneous
  Country: US (occurrence: US)
  Receive Date: 20140625
  Receipt Date: 20140625
  Transmission Date: 20141212
  Serious: No
  Sender: FDA-Public Use
  Company Number: US-BAYER-2014-095227

PATIENT
  Age: 53 Year
  Sex: Female
  Weight: 92 kg

DRUGS (2)
  1. ALEVE TABLET [Suspect]
     Indication: ANALGESIC THERAPY
     Dosage: 2 DF, BID
     Route: 048
     Dates: start: 20140617
  2. NORVASC [Concomitant]

REACTIONS (1)
  - Extra dose administered [None]
